FAERS Safety Report 20013099 (Version 1)
Quarter: 2021Q4

REPORT INFORMATION
  Report Type: Spontaneous
  Country: US (occurrence: US)
  Receive Date: 20211029
  Receipt Date: 20211029
  Transmission Date: 20220303
  Serious: Yes (Death, Other)
  Sender: FDA-Public Use
  Company Number: US-SA-SAC20211028001319

PATIENT
  Age: 69 Year
  Sex: Male

DRUGS (1)
  1. ZANTAC [Suspect]
     Active Substance: RANITIDINE HYDROCHLORIDE
     Indication: Gastric ulcer
     Dosage: UNK UNK, QD
     Dates: start: 198001, end: 200602

REACTIONS (2)
  - Colorectal cancer [Fatal]
  - Hepatic cancer stage IV [Fatal]

NARRATIVE: CASE EVENT DATE: 20050910
